FAERS Safety Report 24334339 (Version 1)
Quarter: 2024Q3

REPORT INFORMATION
  Report Type: Spontaneous
  Country: US (occurrence: US)
  Receive Date: 20240918
  Receipt Date: 20240918
  Transmission Date: 20241017
  Serious: No
  Sender: MERCK
  Company Number: US-009507513-2409USA005698

PATIENT
  Age: 75 Year
  Sex: Female

DRUGS (2)
  1. KEYTRUDA [Suspect]
     Active Substance: PEMBROLIZUMAB
     Indication: Leiomyosarcoma metastatic
     Dosage: 200 MILLIGRAM, Q3W
  2. SODIUM ASCORBATE [Suspect]
     Active Substance: SODIUM ASCORBATE
     Indication: Leiomyosarcoma metastatic
     Dosage: 25 GRAM, Q3W

REACTIONS (1)
  - Off label use [Unknown]
